FAERS Safety Report 20295980 (Version 5)
Quarter: 2022Q1

REPORT INFORMATION
  Report Type: Spontaneous
  Country: IT (occurrence: IT)
  Receive Date: 20220105
  Receipt Date: 20220307
  Transmission Date: 20220424
  Serious: Yes (Death, Hospitalization, Other)
  Sender: FDA-Public Use
  Company Number: IT-ORGANON-O2112ITA001795

PATIENT
  Age: 77 Year
  Sex: Female
  Weight: 50 kg

DRUGS (45)
  1. LEVOFLOXACIN [Suspect]
     Active Substance: LEVOFLOXACIN
     Indication: Product used for unknown indication
     Dosage: 500 MILLIGRAM, ONCE A DAY
     Route: 048
  2. ACETAMINOPHEN [Suspect]
     Active Substance: ACETAMINOPHEN
     Indication: Haemorrhoids
     Dosage: 500 MILLIGRAM, ONCE A DAY
     Route: 048
     Dates: start: 20211020, end: 20211020
  3. ACETAMINOPHEN [Suspect]
     Active Substance: ACETAMINOPHEN
     Indication: Contusion
     Dosage: 1 GRAM, ONCE A DAY
     Route: 048
     Dates: start: 20211021, end: 20211114
  4. ACETAMINOPHEN [Suspect]
     Active Substance: ACETAMINOPHEN
     Dosage: 1 GRAM, ONCE A DAY (1 GM,1 IN 1, PRN )
     Route: 048
     Dates: start: 20211025, end: 20211025
  5. ACETAMINOPHEN [Suspect]
     Active Substance: ACETAMINOPHEN
     Dosage: UNK
     Route: 065
     Dates: start: 20211115, end: 20211115
  6. ACETAMINOPHEN [Suspect]
     Active Substance: ACETAMINOPHEN
     Dosage: 1 GRAM, ONCE A DAY
     Route: 042
     Dates: start: 20211025, end: 20211025
  7. IMETELSTAT [Suspect]
     Active Substance: IMETELSTAT
     Indication: Product used for unknown indication
     Dosage: UNK
     Route: 065
  8. NOXAFIL [Suspect]
     Active Substance: POSACONAZOLE
     Indication: Prophylaxis
     Dosage: 300 MILLIGRAM, ONCE A DAY (100 MG,3 IN 1 D)
     Route: 048
     Dates: start: 20210922
  9. NOXAFIL [Suspect]
     Active Substance: POSACONAZOLE
     Indication: Antifungal prophylaxis
  10. SIMVASTATIN [Suspect]
     Active Substance: SIMVASTATIN
     Indication: Dyslipidaemia
     Dosage: 20 MILLIGRAM, ONCE A DAY (20 MILLIGRAM, 1 IN 1D)
     Route: 048
     Dates: start: 20150101
  11. MESALAMINE [Concomitant]
     Active Substance: MESALAMINE
     Indication: Haemorrhoids
     Dosage: 1 DOSAGE FORM
     Route: 054
     Dates: start: 20211029
  12. SODIUM CHLORIDE [Concomitant]
     Active Substance: SODIUM CHLORIDE
     Indication: Hyponatraemia
     Dosage: 2340 MILLIGRAM, ONCE A DAY (2340 MILLIGRAM, 1 IN 1)
     Route: 042
     Dates: start: 20211021
  13. SODIUM CHLORIDE [Concomitant]
     Active Substance: SODIUM CHLORIDE
     Dosage: 41.4 GRAM, ONCE A DAY (41.4 GM (13.8 GM, 3 IN 1 D))
     Route: 048
     Dates: start: 20211021
  14. SODIUM CHLORIDE [Concomitant]
     Active Substance: SODIUM CHLORIDE
     Dosage: 2340 MILLIGRAM, ONCE A DAY (2340 MILLIGRAM, 1 IN 1)
     Route: 042
     Dates: start: 20211022, end: 20211022
  15. SODIUM CHLORIDE [Concomitant]
     Active Substance: SODIUM CHLORIDE
     Dosage: 0.9 PERCENT, ONCE A DAY (0.9 PERCENT, 1 IN 1)
     Route: 042
     Dates: start: 20211024, end: 20211024
  16. SODIUM CHLORIDE [Concomitant]
     Active Substance: SODIUM CHLORIDE
     Dosage: 2340 MILLIGRAM, ONCE A DAY (2340 MILLIGRAM, 1 IN 1)
     Route: 042
     Dates: start: 20211025, end: 20211025
  17. SODIUM CHLORIDE [Concomitant]
     Active Substance: SODIUM CHLORIDE
     Dosage: 2340 MILLIGRAM, ONCE A DAY
     Route: 042
     Dates: start: 20211026, end: 20211026
  18. SODIUM CHLORIDE [Concomitant]
     Active Substance: SODIUM CHLORIDE
     Dosage: UNK
     Route: 042
     Dates: start: 20211112, end: 20211112
  19. SODIUM CHLORIDE [Concomitant]
     Active Substance: SODIUM CHLORIDE
     Dosage: UNK
     Route: 042
     Dates: start: 20211116, end: 20211119
  20. SODIUM CHLORIDE [Concomitant]
     Active Substance: SODIUM CHLORIDE
     Dosage: 60 MILLIEQUIVALENT, ONCE A DAY
     Route: 065
  21. SODIUM CHLORIDE [Concomitant]
     Active Substance: SODIUM CHLORIDE
     Dosage: 2340 MILLIGRAM, ONCE A DAY
     Route: 042
     Dates: start: 20211021, end: 20211021
  22. OMEPRAZOLE [Concomitant]
     Active Substance: OMEPRAZOLE
     Indication: Prophylaxis
     Dosage: 20 GRAM, ONCE A DAY
     Route: 048
     Dates: start: 20190101
  23. VALDERMA [Concomitant]
     Indication: Haemorrhoids
     Dosage: UNK
     Route: 048
     Dates: start: 20211029
  24. ACYCLOVIR [Concomitant]
     Active Substance: ACYCLOVIR
     Indication: Prophylaxis
     Dosage: 800 MILLIGRAM, ONCE A DAY
     Route: 048
     Dates: start: 20190101
  25. MOVICOL [Concomitant]
     Active Substance: POLYETHYLENE GLYCOL 3350\POTASSIUM CHLORIDE\SODIUM BICARBONATE\SODIUM CHLORIDE
     Indication: Constipation
     Dosage: 41.4 GRAM, ONCE A DAY
     Route: 048
     Dates: start: 20211021
  26. Covid-19 vaccine [Concomitant]
     Indication: COVID-19 immunisation
     Dosage: UNK
     Route: 030
     Dates: start: 20210314
  27. Covid-19 vaccine [Concomitant]
     Dosage: UNK
     Route: 030
     Dates: start: 20210414, end: 20210414
  28. TRAMADOL [Concomitant]
     Active Substance: TRAMADOL
     Indication: Haemorrhoids
     Dosage: 100 MILLIGRAM, ONCE A DAY (100 MG,1 IN 1)
     Route: 042
     Dates: start: 20211026
  29. PROCTOLYN [Concomitant]
     Indication: Haemorrhoids
     Dosage: 3 DOSAGE FORM, ONCE A DAY
     Route: 061
     Dates: start: 20211021
  30. HUMAN RED BLOOD CELL [Concomitant]
     Active Substance: HUMAN RED BLOOD CELL
     Indication: Anaemia
     Dosage: UNK
     Route: 042
     Dates: start: 20211010, end: 20211010
  31. HUMAN RED BLOOD CELL [Concomitant]
     Active Substance: HUMAN RED BLOOD CELL
     Dosage: UNK
     Route: 042
     Dates: start: 20211020, end: 20211020
  32. HUMAN RED BLOOD CELL [Concomitant]
     Active Substance: HUMAN RED BLOOD CELL
     Dosage: UNK
     Route: 042
     Dates: start: 20211025, end: 20211025
  33. MEROPENEM [Concomitant]
     Active Substance: MEROPENEM
     Indication: Pneumonia
     Dosage: 3000 MILLIGRAM, ONCE A DAY(1000 MG, 3 IN 1 D )
     Route: 042
     Dates: start: 20210916
  34. SALICYLIC ACID;ZINC OXIDE [Concomitant]
     Indication: Haemorrhoids
     Dosage: UNK
     Route: 061
     Dates: start: 20211029
  35. HYDROXYUREA [Concomitant]
     Active Substance: HYDROXYUREA
     Indication: Acute myeloid leukaemia
     Dosage: 1000 MILLIGRAM, ONCE A DAY
     Route: 048
     Dates: start: 20210906
  36. MODURETIC 5-50 [Concomitant]
     Active Substance: AMILORIDE HYDROCHLORIDE\HYDROCHLOROTHIAZIDE
     Indication: Hypertension
     Dosage: 1 DOSAGE FORM, ONCE A DAY
     Route: 048
     Dates: start: 20150101
  37. SODIUM [Concomitant]
     Active Substance: SODIUM
     Indication: Hyponatraemia
     Dosage: 0.9 PERCENT, ONCE A DAY
     Route: 042
     Dates: start: 20211018
  38. OXYGEN [Concomitant]
     Active Substance: OXYGEN
     Indication: Product used for unknown indication
     Dosage: UNK (1 TO 2 LITRES PER MINUTE AS NEEDED)
     Route: 065
     Dates: start: 20211117, end: 20211117
  39. OXYGEN [Concomitant]
     Active Substance: OXYGEN
     Dosage: 3 LITER ((LITRES PER MINUTE AS NEEDED))
     Route: 065
     Dates: start: 20211118, end: 20211119
  40. OXYGEN [Concomitant]
     Active Substance: OXYGEN
     Dosage: 4 LITER (LITRES PER MINUTE AS NEEDED))
     Route: 065
     Dates: start: 20211120
  41. Pursennid [Concomitant]
     Indication: Constipation
     Dosage: 2 DOSAGE FORM (TOTAL)
     Route: 048
     Dates: start: 20211119
  42. POTASSIUM CHLORIDE [Concomitant]
     Active Substance: POTASSIUM CHLORIDE
     Indication: Product used for unknown indication
     Dosage: 20 MILLIEQUIVALENT, ONCE A DAY
     Route: 042
     Dates: start: 20211118
  43. PIPERACILLIN SODIUM\TAZOBACTAM SODIUM [Concomitant]
     Active Substance: PIPERACILLIN SODIUM\TAZOBACTAM SODIUM
     Indication: Product used for unknown indication
     Dosage: 3 DOSAGE FORM, ONCE A DAY
     Route: 042
     Dates: start: 20211117, end: 20211119
  44. PIPERACILLIN SODIUM\TAZOBACTAM SODIUM [Concomitant]
     Active Substance: PIPERACILLIN SODIUM\TAZOBACTAM SODIUM
     Dosage: UNK, ONCE A DAY
     Route: 042
     Dates: start: 20211120
  45. PIPERACILLIN SODIUM\TAZOBACTAM SODIUM [Concomitant]
     Active Substance: PIPERACILLIN SODIUM\TAZOBACTAM SODIUM
     Dosage: UNK, ONCE A DAY
     Route: 042
     Dates: start: 20011117, end: 20211119

REACTIONS (21)
  - Acute myeloid leukaemia [Fatal]
  - Blood lactate dehydrogenase increased [Fatal]
  - Aspartate aminotransferase increased [Fatal]
  - Blood alkaline phosphatase increased [Fatal]
  - Blood bilirubin increased [Fatal]
  - Hyponatraemia [Fatal]
  - Neutropenia [Fatal]
  - Nausea [Fatal]
  - Pain [Fatal]
  - Vomiting [Fatal]
  - Constipation [Fatal]
  - Diarrhoea [Fatal]
  - Hypokalaemia [Fatal]
  - Asthenia [Fatal]
  - Anaemia [Fatal]
  - Drug-induced liver injury [Fatal]
  - Tachycardia [Fatal]
  - Pneumonia [Fatal]
  - Thrombocytopenia [Fatal]
  - Renal disorder [Fatal]
  - Infection [Fatal]

NARRATIVE: CASE EVENT DATE: 20210811
